FAERS Safety Report 11736730 (Version 1)
Quarter: 2015Q4

REPORT INFORMATION
  Report Type: Spontaneous
  Country: US (occurrence: US)
  Receive Date: 20151110
  Receipt Date: 20151110
  Transmission Date: 20160304
  Serious: No
  Sender: FDA-Public Use
  Company Number: US-ELI_LILLY_AND_COMPANY-US201206007293

PATIENT
  Sex: Female

DRUGS (3)
  1. FORTEO [Suspect]
     Active Substance: TERIPARATIDE
     Indication: OSTEOPOROSIS
     Dosage: 20 UG, QD
  2. LYRICA [Concomitant]
     Active Substance: PREGABALIN
     Dosage: 50 MG, UNKNOWN
  3. IMITREX [Concomitant]
     Active Substance: SUMATRIPTAN\SUMATRIPTAN SUCCINATE
     Dosage: 50 MG, UNKNOWN

REACTIONS (3)
  - Gingival bleeding [Unknown]
  - Ocular hyperaemia [Unknown]
  - Contusion [Unknown]
